FAERS Safety Report 9387633 (Version 2)
Quarter: 2014Q2

REPORT INFORMATION
  Report Type: Spontaneous
  Country: IT (occurrence: IT)
  Receive Date: 20130708
  Receipt Date: 20140421
  Transmission Date: 20141212
  Serious: Yes (Hospitalization)
  Sender: FDA-Public Use
  Company Number: IT-EISAI INC-E7389-03999-SPO-IT

PATIENT
  Age: 60 Year
  Sex: Female

DRUGS (6)
  1. HALAVEN [Suspect]
     Indication: BREAST CANCER
     Route: 041
     Dates: start: 20130327, end: 20130327
  2. RANIDIL [Suspect]
  3. HERCEPTIN [Suspect]
  4. KYTRIL [Suspect]
  5. LANSOPRAZOLE [Concomitant]
     Route: 048
  6. DIBASE [Concomitant]
     Dosage: 3 DROPS
     Route: 048

REACTIONS (3)
  - Hypertransaminasaemia [Recovered/Resolved]
  - Vomiting [Recovered/Resolved]
  - Decreased appetite [Recovered/Resolved]
